FAERS Safety Report 5866698-6 (Version None)
Quarter: 2008Q3

REPORT INFORMATION
  Report Type: 
  Country: None (occurrence: None)
  Receive Date: 20080902
  Receipt Date: 20080815
  Transmission Date: 20090109
  Serious: Yes (Other)
  Sender: FDA-Public Use
  Company Number: DE-BAYER-200111961BVD

PATIENT
  Sex: Male
  Weight: 84 kg

DRUGS (5)
  1. LIPOBAY 0.2 [Suspect]
     Indication: HYPERCHOLESTEROLAEMIA
     Route: 048
     Dates: start: 19971215, end: 20010701
  2. METFORMIN HCL [Concomitant]
     Indication: TYPE 2 DIABETES MELLITUS
     Route: 048
  3. INSULIN [Concomitant]
     Indication: TYPE 2 DIABETES MELLITUS
  4. ANTIHYPERTENSIVE TREATMENT, NOS [Concomitant]
  5. CARDIACA,NOS [Concomitant]

REACTIONS (16)
  - ANAEMIA [None]
  - ASTHENIA [None]
  - BONE LESION [None]
  - BONE MARROW DISORDER [None]
  - BRONCHITIS CHRONIC [None]
  - BRONCHOPNEUMONIA [None]
  - DYSPHONIA [None]
  - GAIT DISTURBANCE [None]
  - JOINT DESTRUCTION [None]
  - MUSCLE ATROPHY [None]
  - MUSCLE SPASMS [None]
  - MYALGIA [None]
  - RENAL IMPAIRMENT [None]
  - RESPIRATORY FAILURE [None]
  - RHABDOMYOLYSIS [None]
  - TENDON INJURY [None]
